FAERS Safety Report 19699574 (Version 1)
Quarter: 2021Q3

REPORT INFORMATION
  Report Type: Spontaneous
  Country: AU (occurrence: AU)
  Receive Date: 20210813
  Receipt Date: 20210813
  Transmission Date: 20211014
  Serious: Yes (Disabling)
  Sender: FDA-Public Use
  Company Number: AU-GILEAD-2021-0543521

PATIENT
  Age: 45 Year
  Sex: Male
  Weight: 81 kg

DRUGS (5)
  1. FEBUXOSTAT. [Concomitant]
     Active Substance: FEBUXOSTAT
     Dosage: 40 MG
     Route: 048
     Dates: start: 20210617
  2. IMOVANE [Concomitant]
     Active Substance: ZOPICLONE
     Dosage: 7.5 MG
     Route: 048
     Dates: start: 20190910
  3. VIAGRA [Concomitant]
     Active Substance: SILDENAFIL CITRATE
     Dosage: 50?100 MG
     Route: 048
     Dates: start: 20201209
  4. MINOXIDIL. [Concomitant]
     Active Substance: MINOXIDIL
     Dosage: UNK
     Route: 048
     Dates: start: 20190910
  5. BIKTARVY [Suspect]
     Active Substance: BICTEGRAVIR SODIUM\EMTRICITABINE\TENOFOVIR ALAFENAMIDE FUMARATE
     Indication: PRODUCT USED FOR UNKNOWN INDICATION
     Dosage: 50MG/200MG/25MG
     Route: 048
     Dates: start: 20190530

REACTIONS (4)
  - Blood creatine phosphokinase increased [Not Recovered/Not Resolved]
  - Fatigue [Unknown]
  - Myositis [Not Recovered/Not Resolved]
  - Arthralgia [Not Recovered/Not Resolved]

NARRATIVE: CASE EVENT DATE: 202007
